FAERS Safety Report 6968636-1 (Version None)
Quarter: 2010Q3

REPORT INFORMATION
  Report Type: 
  Country: None (occurrence: None)
  Receive Date: 20100907
  Receipt Date: 20100831
  Transmission Date: 20110219
  Serious: Yes (Other)
  Sender: FDA-Public Use
  Company Number: FR-JNJFOC-20100603894

PATIENT
  Age: 45 Year
  Sex: Female

DRUGS (3)
  1. RISPERDAL [Suspect]
     Indication: DELIRIUM
     Dosage: 4-5 YEARS
     Route: 048
  2. RISPERDAL [Suspect]
     Indication: PSYCHOTIC DISORDER
     Dosage: 4-5 YEARS
     Route: 048
  3. AKINETON [Suspect]
     Indication: PRODUCT USED FOR UNKNOWN INDICATION
     Route: 048

REACTIONS (1)
  - RHEUMATOID ARTHRITIS [None]
